FAERS Safety Report 4315118-1 (Version None)
Quarter: 2004Q1

REPORT INFORMATION
  Report Type: 
  Country: None (occurrence: None)
  Receive Date: 20040310
  Receipt Date: 20040105
  Transmission Date: 20041129
  Serious: Yes (Hospitalization)
  Sender: FDA-Public Use
  Company Number: FR-BRISTOL-MYERS SQUIBB COMPANY-12469854

PATIENT
  Age: 64 Year
  Sex: Male

DRUGS (2)
  1. ELISOR [Suspect]
     Route: 048
  2. ASPIRIN [Concomitant]

REACTIONS (4)
  - BLOOD CREATINE PHOSPHOKINASE INCREASED [None]
  - HAEMATOMA [None]
  - RESPIRATORY DISTRESS [None]
  - RHABDOMYOLYSIS [None]
